FAERS Safety Report 8346088-7 (Version None)
Quarter: 2012Q2

REPORT INFORMATION
  Report Type: 
  Country: None (occurrence: None)
  Receive Date: 20120509
  Receipt Date: 20120427
  Transmission Date: 20120825
  Serious: Yes (Death, Hospitalization)
  Sender: FDA-Public Use
  Company Number: NZ-CELGENEUS-118-20785-11110243

PATIENT
  Sex: Male

DRUGS (14)
  1. THALIDOMIDE [Suspect]
     Dosage: 50 MILLIGRAM
     Route: 048
     Dates: start: 20110301
  2. TERBUTALINE [Concomitant]
     Route: 065
  3. EPINEPHRINE [Concomitant]
     Dates: start: 20110902
  4. QUINAPRIL [Concomitant]
     Route: 065
  5. ZOPICLONE [Concomitant]
     Route: 065
  6. OMEPRAZOLE [Concomitant]
     Route: 065
  7. TRANEXAMIC ACID [Concomitant]
     Route: 065
  8. THALIDOMIDE [Suspect]
     Route: 048
     Dates: end: 20110927
  9. SPAN K [Concomitant]
     Route: 065
  10. TEGRETOL [Concomitant]
     Route: 065
  11. FUROSEMIDE [Concomitant]
     Route: 065
  12. ALLOPURINOL [Concomitant]
     Route: 065
  13. BINIFIBRATE [Concomitant]
     Route: 065
  14. METOPROLOL TARTRATE [Concomitant]
     Route: 065

REACTIONS (1)
  - GASTRIC PERFORATION [None]
